FAERS Safety Report 6915250-X (Version None)
Quarter: 2010Q3

REPORT INFORMATION
  Report Type: 
  Country: None (occurrence: None)
  Receive Date: 20100809
  Receipt Date: 20091027
  Transmission Date: 20110219
  Serious: Yes (Other)
  Sender: FDA-Public Use
  Company Number: US-ABBOTT-08P-163-0488437-00

PATIENT
  Sex: Female
  Weight: 54.48 kg

DRUGS (2)
  1. DEPAKOTE ER [Suspect]
     Indication: CONVULSION
     Route: 048
     Dates: start: 19810101, end: 20081109
  2. DEPAKOTE ER [Suspect]
     Indication: EPILEPSY

REACTIONS (5)
  - CONVULSION [None]
  - FATIGUE [None]
  - LOSS OF CONSCIOUSNESS [None]
  - ORAL DISCOMFORT [None]
  - VISION BLURRED [None]
